FAERS Safety Report 5054844-6 (Version None)
Quarter: 2006Q3

REPORT INFORMATION
  Report Type: 
  Country: None (occurrence: None)
  Receive Date: 20060717
  Receipt Date: 20060705
  Transmission Date: 20061208
  Serious: Yes (Other)
  Sender: FDA-Public Use
  Company Number: 2006083042

PATIENT
  Age: 72 Year
  Sex: Female

DRUGS (2)
  1. SERTRALINE [Suspect]
     Indication: DEPRESSION
     Dosage: 25 MG (1 D)
  2. LINEZOLID [Suspect]
     Indication: POSTOPERATIVE WOUND INFECTION
     Dosage: ONCE

REACTIONS (5)
  - DELIRIUM [None]
  - DRUG INTERACTION [None]
  - INCISION SITE COMPLICATION [None]
  - POST PROCEDURAL COMPLICATION [None]
  - WOUND SECRETION [None]
